FAERS Safety Report 14920624 (Version 4)
Quarter: 2018Q3

REPORT INFORMATION
  Report Type: Report from Study
  Country: US (occurrence: US)
  Receive Date: 20180521
  Receipt Date: 20180701
  Transmission Date: 20181010
  Serious: No
  Sender: FDA-Public Use
  Company Number: PHEH2018US019256

PATIENT
  Sex: Male

DRUGS (2)
  1. COSENTYX [Suspect]
     Active Substance: SECUKINUMAB
     Dosage: UNK
     Route: 065
     Dates: start: 20180610
  2. COSENTYX [Suspect]
     Active Substance: SECUKINUMAB
     Indication: PSORIASIS
     Dosage: 300 MG, QMO
     Route: 058

REACTIONS (7)
  - Injection site bruising [Unknown]
  - Cyst [Unknown]
  - Discomfort [Unknown]
  - Drug administration error [Unknown]
  - Concomitant disease aggravated [Unknown]
  - Skin disorder [Not Recovered/Not Resolved]
  - Injection site mass [Unknown]
